FAERS Safety Report 8118279-1 (Version None)
Quarter: 2012Q1

REPORT INFORMATION
  Report Type: 
  Country: None (occurrence: None)
  Receive Date: 20120207
  Receipt Date: 20120124
  Transmission Date: 20120608
  Serious: Yes (Hospitalization)
  Sender: FDA-Public Use
  Company Number: DE-ASTELLAS-2012US001479

PATIENT
  Sex: Male

DRUGS (6)
  1. TARCEVA [Suspect]
     Indication: PANCREATIC CARCINOMA
     Dosage: 100 MG, UID/QD
     Route: 048
     Dates: start: 20120104
  2. METOCLOPRAMIDE [Concomitant]
     Indication: PROPHYLAXIS OF NAUSEA AND VOMITING
     Dosage: 30 DROPS, UNKNOWN/D
     Route: 048
  3. ANTI-ASTHMATICS [Concomitant]
     Indication: ASTHMA
     Dosage: UNK
     Route: 055
  4. ANTIHISTAMINES [Concomitant]
     Indication: ASTHMA
     Dosage: UNK
     Route: 048
  5. ANTIDIABETIC DRUG NOS [Concomitant]
     Indication: TYPE 2 DIABETES MELLITUS
     Dosage: UNK
     Route: 065
  6. GEMCITABINE [Concomitant]
     Indication: PANCREATIC CARCINOMA
     Dosage: 2250 MG, WEEKLY
     Route: 042
     Dates: start: 20120104

REACTIONS (1)
  - ASTHMA [None]
